FAERS Safety Report 25610336 (Version 4)
Quarter: 2025Q4

REPORT INFORMATION
  Report Type: Report from Study
  Country: US (occurrence: US)
  Receive Date: 20250728
  Receipt Date: 20251110
  Transmission Date: 20260117
  Serious: Yes (Other)
  Sender: AMGEN
  Company Number: US-AMGEN-USASL2025145578

PATIENT
  Age: 84 Year
  Sex: Male

DRUGS (5)
  1. TEPEZZA [Suspect]
     Active Substance: TEPROTUMUMAB-TRBW
     Indication: Toxic goitre
     Dosage: UNK
     Route: 040
     Dates: start: 20250528
  2. TEPEZZA [Suspect]
     Active Substance: TEPROTUMUMAB-TRBW
     Dosage: UNK, FOURTH INFUSION
     Route: 040
     Dates: start: 20250804
  3. TEPEZZA [Suspect]
     Active Substance: TEPROTUMUMAB-TRBW
     Dosage: UNK, FOURTH INFUSION
     Route: 040
     Dates: start: 2025
  4. TEPEZZA [Suspect]
     Active Substance: TEPROTUMUMAB-TRBW
     Dosage: UNK, SEVENTH INFUSION
     Route: 040
     Dates: start: 2025
  5. TEPEZZA [Suspect]
     Active Substance: TEPROTUMUMAB-TRBW
     Dosage: UNK, EIGHTH INFUSION
     Route: 040
     Dates: start: 2025

REACTIONS (5)
  - Deafness unilateral [Unknown]
  - Drug effect less than expected [Unknown]
  - Blood glucose increased [Unknown]
  - Fatigue [Unknown]
  - Visual acuity reduced [Recovering/Resolving]

NARRATIVE: CASE EVENT DATE: 20250101
